FAERS Safety Report 10018018 (Version 1)
Quarter: 2014Q1

REPORT INFORMATION
  Report Type: Spontaneous
  Country: US (occurrence: None)
  Receive Date: 20140313
  Receipt Date: 20140313
  Transmission Date: 20141002
  Serious: Yes (Life-Threatening, Hospitalization, Disabling)
  Sender: FDA-Public Use
  Company Number: None

PATIENT
  Age: 59 Year
  Sex: Male
  Weight: 76.66 kg

DRUGS (4)
  1. ATORVASTATIN CALCIUM [Suspect]
     Indication: BLOOD CHOLESTEROL
     Dosage: AT BEDTIME, BY MOUTH
     Dates: start: 20121221, end: 20140121
  2. CLOPIDOGREL [Concomitant]
  3. CARVEDILOL [Concomitant]
  4. LISINOPRIL [Concomitant]

REACTIONS (5)
  - Pruritus [None]
  - Cerebrovascular accident [None]
  - Pain in extremity [None]
  - Skin warm [None]
  - Myalgia [None]
